APPROVED DRUG PRODUCT: THIOTEPA
Active Ingredient: THIOTEPA
Strength: 15MG/VIAL
Dosage Form/Route: POWDER;INTRACAVITARY, INTRAVENOUS, INTRAVESICAL
Application: A217559 | Product #001 | TE Code: AP
Applicant: REGCON HOLDINGS LLC
Approved: Aug 20, 2024 | RLD: No | RS: No | Type: RX